FAERS Safety Report 11244845 (Version 1)
Quarter: 2015Q3

REPORT INFORMATION
  Report Type: Spontaneous
  Country: US (occurrence: US)
  Receive Date: 20150707
  Receipt Date: 20150707
  Transmission Date: 20151125
  Serious: No
  Sender: FDA-Public Use
  Company Number: US-TARO-2015TAR00464

PATIENT
  Sex: Female
  Weight: 24.94 kg

DRUGS (3)
  1. ACETAZOLAMIDE TABLETS 250 MG [Suspect]
     Active Substance: ACETAZOLAMIDE
     Indication: FAMILIAL PERIODIC PARALYSIS
     Dosage: 500 MG, 2X/DAY
     Route: 048
     Dates: start: 201502
  2. LAMICTAL XR [Concomitant]
     Active Substance: LAMOTRIGINE
     Dosage: 200 MG, 1X/DAY
     Dates: start: 2011
  3. ACETAZOLAMIDE TABLETS 250 MG [Suspect]
     Active Substance: ACETAZOLAMIDE
     Dosage: 125 MG, 3X/DAY
     Route: 048

REACTIONS (3)
  - Pruritus [Recovering/Resolving]
  - Off label use [Not Recovered/Not Resolved]
  - Muscle twitching [Not Recovered/Not Resolved]

NARRATIVE: CASE EVENT DATE: 2015
